FAERS Safety Report 9384505 (Version 2)
Quarter: 2013Q3

REPORT INFORMATION
  Report Type: Spontaneous
  Country: US (occurrence: US)
  Receive Date: 20130705
  Receipt Date: 20130717
  Transmission Date: 20140515
  Serious: Yes (Other)
  Sender: FDA-Public Use
  Company Number: US-JNJFOC-20130618408

PATIENT
  Sex: Female
  Weight: 77.11 kg

DRUGS (2)
  1. REMICADE [Suspect]
     Indication: PSORIASIS
     Route: 042
     Dates: start: 201303
  2. REMICADE [Suspect]
     Indication: PSORIASIS
     Route: 042
     Dates: end: 201305

REACTIONS (2)
  - Squamous cell carcinoma [Not Recovered/Not Resolved]
  - Chills [Recovered/Resolved]
